FAERS Safety Report 7476891-7 (Version None)
Quarter: 2011Q2

REPORT INFORMATION
  Report Type: 
  Country: None (occurrence: None)
  Receive Date: 20110512
  Receipt Date: 20101006
  Transmission Date: 20111010
  Serious: Yes (Hospitalization, Other)
  Sender: FDA-Public Use
  Company Number: US-BAYER-201021204NA

PATIENT
  Age: 33 Year
  Sex: Female
  Weight: 53.968 kg

DRUGS (12)
  1. YAZ [Suspect]
     Indication: PREMENSTRUAL SYNDROME
     Dosage: UNK
     Route: 048
     Dates: start: 20071201, end: 20090301
  2. ZOLOFT [Concomitant]
     Indication: DEPRESSION
     Dosage: 50 MG, UNK
     Route: 048
  3. DARVOCET [Concomitant]
  4. REGLAN [Concomitant]
     Indication: NAUSEA
  5. IMODIUM MULTI-SYMPTOM RELIEF [Concomitant]
     Indication: DIARRHOEA
  6. BENTYL [Concomitant]
     Indication: ABDOMINAL PAIN
  7. YAZ [Suspect]
     Indication: MENSTRUAL CYCLE MANAGEMENT
  8. REGLAN [Concomitant]
     Indication: VOMITING
  9. BACTRIM DS [Concomitant]
     Indication: DIARRHOEA
  10. YAZ [Suspect]
     Indication: OVARIAN CYST
  11. PHENERGAN HCL [Concomitant]
  12. XANAX [Concomitant]
     Indication: ANXIETY
     Dosage: 0.25 MG, UNK
     Route: 048

REACTIONS (4)
  - CHOLECYSTITIS ACUTE [None]
  - PULMONARY EMBOLISM [None]
  - CHOLELITHIASIS [None]
  - ATELECTASIS [None]
